FAERS Safety Report 10404251 (Version 1)
Quarter: 2014Q1

REPORT INFORMATION
  Report Type: Spontaneous
  Country: US (occurrence: None)
  Receive Date: 20140131
  Receipt Date: 20140131
  Transmission Date: 20141002
  Serious: Yes (Other)
  Sender: FDA-Public Use
  Company Number: 072394

PATIENT
  Sex: Male
  Weight: 83 kg

DRUGS (2)
  1. LEVETIRACETAM [Suspect]
     Indication: CONVULSION
  2. OXCARBAZEPINE [Concomitant]

REACTIONS (2)
  - Convulsion [None]
  - Treatment noncompliance [None]
